FAERS Safety Report 6136366-4 (Version None)
Quarter: 2009Q1

REPORT INFORMATION
  Report Type: 
  Country: None (occurrence: None)
  Receive Date: 20090330
  Receipt Date: 20090323
  Transmission Date: 20090719
  Serious: Yes (Life-Threatening, Hospitalization)
  Sender: FDA-Public Use
  Company Number: FR-ROCHE-333713

PATIENT
  Sex: Male
  Weight: 11.2 kg

DRUGS (2)
  1. ROCEPHIN [Suspect]
     Dosage: ONLY ONE DOSE WAS ADMINISTERED.
     Route: 042
  2. ROCEPHIN [Suspect]
     Route: 042

REACTIONS (5)
  - ANOXIA [None]
  - BRADYCARDIA [None]
  - CARDIAC ARREST [None]
  - CONVULSION [None]
  - PSYCHOMOTOR RETARDATION [None]
